FAERS Safety Report 19980694 (Version 1)
Quarter: 2021Q4

REPORT INFORMATION
  Report Type: Spontaneous
  Country: AU (occurrence: AU)
  Receive Date: 20211021
  Receipt Date: 20211021
  Transmission Date: 20220303
  Serious: Yes (Death, Other)
  Sender: FDA-Public Use
  Company Number: AU-NOVARTISPH-NVSC2020AU081064

PATIENT
  Age: 6 Year

DRUGS (1)
  1. KYMRIAH [Suspect]
     Active Substance: TISAGENLECLEUCEL
     Indication: Acute lymphocytic leukaemia
     Dosage: UNK
     Route: 041
     Dates: start: 20200318

REACTIONS (6)
  - Stenotrophomonas sepsis [Fatal]
  - Pseudomonal sepsis [Fatal]
  - Acute lymphocytic leukaemia recurrent [Unknown]
  - Metastases to central nervous system [Unknown]
  - Bone marrow disorder [Unknown]
  - Out of specification test results [Unknown]
